FAERS Safety Report 9519175 (Version 1)
Quarter: 2013Q1

REPORT INFORMATION
  Report Type: Spontaneous
  Country: US (occurrence: None)
  Receive Date: 20130305
  Receipt Date: 20130305
  Transmission Date: 20140127
  Serious: Yes (Hospitalization)
  Sender: FDA-Public Use
  Company Number: 163-21880-12010655

PATIENT
  Age: 78 Year
  Sex: Female

DRUGS (12)
  1. REVLIMID ( LENALIDOMIDE) ( 5 MILLIGRAM, CAPSULES) [Suspect]
     Indication: MYELODYSPLASTIC SYNDROME
     Dosage: 5 MG, 1 IN 1 D, PO
     Route: 048
     Dates: start: 20111115, end: 20111227
  2. IMMUNOGLOBULIN ( IMMUNOGLOBULIN) ( INJECTION) [Concomitant]
  3. TYLENOL ( PARACETAMOL) (UNKNOWN) [Concomitant]
  4. TOFRANIL ( IMIPRAMINE HYDROCHLORIDE) ( UNKNOWN) [Concomitant]
  5. NEURONTIN ( GABAPENTIN) [Concomitant]
  6. VESICARE ( SOLIFENACIN SUCCINATE) (UNKNOWN) [Concomitant]
  7. KLONOPIN ( CLONAZEPAM) (UNKNOWN) [Concomitant]
  8. ATENOLOL ( ATENOLOL) ( UNKNOWN) [Concomitant]
  9. PRILOSEC ( OMEPRAZOLE) ( UNKNOWN) [Concomitant]
  10. CENTRUM SILVER ( CENTRUM SILVER) ( UNKNOWN) [Concomitant]
  11. VITAMIN B12 ( CYANOCOBALAMIN) (UNKNOWN) [Concomitant]
  12. ESTRADIOL ( ESTRADIOL) (POULTICE OR PATCH) [Concomitant]

REACTIONS (3)
  - Full blood count decreased [None]
  - Bronchitis [None]
  - Urinary tract infection [None]
